FAERS Safety Report 18586161 (Version 10)
Quarter: 2024Q2

REPORT INFORMATION
  Report Type: Spontaneous
  Country: US (occurrence: US)
  Receive Date: 20201207
  Receipt Date: 20240513
  Transmission Date: 20240716
  Serious: Yes (Hospitalization, Other)
  Sender: FDA-Public Use
  Company Number: US-PFIZER INC-2020480247

PATIENT
  Age: 62 Year
  Sex: Female
  Weight: 62.14 kg

DRUGS (6)
  1. IBRANCE [Suspect]
     Active Substance: PALBOCICLIB
     Indication: Breast cancer female
     Dosage: 125 MG
     Dates: start: 20200511
  2. IBRANCE [Suspect]
     Active Substance: PALBOCICLIB
     Indication: Breast cancer metastatic
     Dosage: 100 MG
     Dates: start: 20200608
  3. IBRANCE [Suspect]
     Active Substance: PALBOCICLIB
     Dosage: DAILY, D1-21/21 DAYS ON 1 WEEK OFF
     Route: 048
     Dates: start: 20200710
  4. IBRANCE [Suspect]
     Active Substance: PALBOCICLIB
     Dosage: 3 WEEKS ON/ 2 WEEKS OFF
     Route: 048
  5. IBRANCE [Suspect]
     Active Substance: PALBOCICLIB
     Dosage: 75 MG, 1X/DAY
     Dates: start: 202005
  6. LETROZOLE [Concomitant]
     Active Substance: LETROZOLE
     Dosage: UNK
     Dates: start: 202005

REACTIONS (10)
  - Leukopenia [Unknown]
  - Neutropenia [Unknown]
  - Full blood count abnormal [Recovered/Resolved]
  - Platelet count decreased [Unknown]
  - White blood cell count decreased [Unknown]
  - Fatigue [Unknown]
  - Stomatitis [Recovered/Resolved]
  - Off label use [Unknown]
  - Diarrhoea [Unknown]
  - Pyrexia [Unknown]
